FAERS Safety Report 5980992-X (Version None)
Quarter: 2008Q4

REPORT INFORMATION
  Report Type: 
  Country: None (occurrence: None)
  Receive Date: 20081205
  Receipt Date: 20080909
  Transmission Date: 20090506
  Serious: No
  Sender: FDA-Public Use
  Company Number: A0746521A

PATIENT
  Age: 60 Year
  Sex: Male

DRUGS (4)
  1. COMMIT [Suspect]
     Dates: start: 20080109
  2. COMMIT [Suspect]
  3. CHLORASEPTIC [Concomitant]
  4. COUGH DROPS [Concomitant]

REACTIONS (7)
  - DRUG INEFFECTIVE [None]
  - INTENTIONAL DRUG MISUSE [None]
  - NICOTINE DEPENDENCE [None]
  - OROPHARYNGEAL PAIN [None]
  - PRODUCT QUALITY ISSUE [None]
  - PRODUCTIVE COUGH [None]
  - STOMATITIS [None]
